FAERS Safety Report 10461741 (Version 3)
Quarter: 2014Q4

REPORT INFORMATION
  Report Type: Spontaneous
  Country: US (occurrence: US)
  Receive Date: 20140918
  Receipt Date: 20141020
  Transmission Date: 20150528
  Serious: Yes (Other)
  Sender: FDA-Public Use
  Company Number: US-SA-2014SA125129

PATIENT
  Age: 55 Year
  Sex: Female
  Weight: 120 kg

DRUGS (11)
  1. EPOGEN [Concomitant]
     Active Substance: ERYTHROPOIETIN
  2. HECTOROL [Concomitant]
     Active Substance: DOXERCALCIFEROL
  3. NEPHRO-VITE RX [Concomitant]
     Dates: start: 201202
  4. PLAVIX [Concomitant]
     Active Substance: CLOPIDOGREL BISULFATE
     Dates: start: 2011
  5. RENVELA [Suspect]
     Active Substance: SEVELAMER CARBONATE
     Indication: CHRONIC KIDNEY DISEASE
     Dosage: RENVELA 2 TAB/ 3 TIMES A DAY
     Route: 048
  6. SIMVASTATIN. [Concomitant]
     Active Substance: SIMVASTATIN
     Dates: start: 2010
  7. IRON [Concomitant]
     Active Substance: IRON
  8. ZOLPIDEM [Concomitant]
     Active Substance: ZOLPIDEM\ZOLPIDEM TARTRATE
     Dosage: AT BED
  9. RENVELA [Suspect]
     Active Substance: SEVELAMER CARBONATE
     Indication: CHRONIC KIDNEY DISEASE
     Dosage: 3 TABLETS WITH MEALS BEFORE 15 MINUTES
     Route: 048
     Dates: start: 201203, end: 2013
  10. METOPROLOL TARTRATE. [Concomitant]
     Active Substance: METOPROLOL TARTRATE
     Dosage: 25 MG 2X ER
     Dates: start: 2010
  11. VENOFER [Concomitant]
     Active Substance: IRON SUCROSE

REACTIONS (2)
  - Gastric bypass [Unknown]
  - Hyperphosphataemia [Not Recovered/Not Resolved]

NARRATIVE: CASE EVENT DATE: 201309
